FAERS Safety Report 8025735-3 (Version None)
Quarter: 2012Q1

REPORT INFORMATION
  Report Type: 
  Country: None (occurrence: None)
  Receive Date: 20120105
  Receipt Date: 20110805
  Transmission Date: 20120608
  Serious: No
  Sender: FDA-Public Use
  Company Number: US-ABBOTT-11P-163-0844354-00

PATIENT
  Weight: 74.91 kg

DRUGS (3)
  1. SYNTHROID [Suspect]
     Indication: THYROIDECTOMY
     Dosage: 88 MICROGRAM, DAILY
     Dates: start: 20090101
  2. ATIVAN [Concomitant]
     Indication: INSOMNIA
  3. ATIVAN [Concomitant]
     Indication: ANXIETY

REACTIONS (4)
  - ABDOMINAL DISTENSION [None]
  - FLATULENCE [None]
  - DIARRHOEA [None]
  - LACTOSE INTOLERANCE [None]
